FAERS Safety Report 8605347-0 (Version None)
Quarter: 2012Q3

REPORT INFORMATION
  Report Type: 
  Country: None (occurrence: None)
  Receive Date: 20120820
  Receipt Date: 20120810
  Transmission Date: 20120928
  Serious: Yes (Other)
  Sender: FDA-Public Use
  Company Number: US-BAYER-2012-051672

PATIENT
  Age: 49 Year
  Sex: Female
  Weight: 59.864 kg

DRUGS (5)
  1. PREDNISONE TAB [Concomitant]
     Dosage: 10 MG, UNK
     Route: 048
  2. HYDROCODONE BITARTRATE AND ACETAMINOPHEN [Concomitant]
     Dosage: 5 - 500 TABLET
     Route: 048
  3. YAZ [Suspect]
     Dosage: UNK
     Dates: start: 20070824, end: 20080907
  4. AMOXICILLIN AND CLAVULANATE POTASSIUM [Concomitant]
     Dosage: 875 - 125 MG TAB
     Route: 048
  5. DROSPIRENONE AND ETHINYL ESTRADIOL [Suspect]
     Dosage: UNK
     Dates: start: 20080908, end: 20100801

REACTIONS (7)
  - PAIN [None]
  - DEEP VEIN THROMBOSIS [None]
  - DEPRESSION [None]
  - INJURY [None]
  - EMOTIONAL DISTRESS [None]
  - FEAR OF DEATH [None]
  - NERVOUSNESS [None]
